FAERS Safety Report 20078081 (Version 2)
Quarter: 2021Q4

REPORT INFORMATION
  Report Type: Spontaneous
  Country: US (occurrence: US)
  Receive Date: 20211117
  Receipt Date: 20211118
  Transmission Date: 20220303
  Serious: Yes (Death, Hospitalization)
  Sender: FDA-Public Use
  Company Number: None

PATIENT
  Age: 22 Year
  Sex: Male
  Weight: 76 kg

DRUGS (4)
  1. TYLENOL [Suspect]
     Active Substance: ACETAMINOPHEN
     Indication: Back pain
     Dosage: ACETAMINOPHEN 500 MG TABLETS, ESTIMATED DAILY INGESTION OF 5000 MG TO 15000 MG FOR 2 YEARS.
     Route: 048
     Dates: end: 20020923
  2. VICODIN [Suspect]
     Active Substance: ACETAMINOPHEN\HYDROCODONE BITARTRATE
     Indication: Back pain
     Dosage: FOR 24 MONTHS
     Route: 048
     Dates: end: 20020923
  3. VEETIDS [Concomitant]
     Active Substance: PENICILLIN V POTASSIUM
     Indication: Product used for unknown indication
     Route: 065
  4. XANAX [Concomitant]
     Active Substance: ALPRAZOLAM
     Indication: Product used for unknown indication
     Dosage: FOR 24 MONTHS
     Route: 065
     Dates: end: 20020923

REACTIONS (6)
  - Chest X-ray abnormal [Fatal]
  - Brain oedema [Fatal]
  - Product administration error [Fatal]
  - Acute hepatic failure [Fatal]
  - Acute kidney injury [Fatal]
  - Accidental overdose [Fatal]

NARRATIVE: CASE EVENT DATE: 20020925
